FAERS Safety Report 13895086 (Version 1)
Quarter: 2017Q3

REPORT INFORMATION
  Report Type: Spontaneous
  Country: US (occurrence: US)
  Receive Date: 20170823
  Receipt Date: 20170823
  Transmission Date: 20171127
  Serious: Yes (Other)
  Sender: FDA-Public Use
  Company Number: US-009507513-1708USA008395

PATIENT
  Sex: Male

DRUGS (2)
  1. LIPITOR [Suspect]
     Active Substance: ATORVASTATIN CALCIUM
  2. TEMODAR [Suspect]
     Active Substance: TEMOZOLOMIDE
     Indication: EPENDYMOMA
     Dosage: 3 ROUNDS OF TEMODAR OVER 3 MONTHS
     Route: 048

REACTIONS (5)
  - Dependence [Not Recovered/Not Resolved]
  - Weight decreased [Unknown]
  - Prostate cancer [Unknown]
  - Malignant neoplasm progression [Not Recovered/Not Resolved]
  - Balance disorder [Not Recovered/Not Resolved]

NARRATIVE: CASE EVENT DATE: 2017
